FAERS Safety Report 25543431 (Version 1)
Quarter: 2025Q3

REPORT INFORMATION
  Report Type: Spontaneous
  Country: US (occurrence: None)
  Receive Date: 20250710
  Receipt Date: 20250710
  Transmission Date: 20251020
  Serious: Yes (Disabling)
  Sender: FDA-CTU
  Company Number: None

PATIENT
  Age: 60 Year
  Sex: Female

DRUGS (11)
  1. MYCOPHENOLATE MOFETIL [Suspect]
     Active Substance: MYCOPHENOLATE MOFETIL
     Indication: Renal transplant
     Dosage: FREQUENCY : TWICE A DAY;?
     Route: 048
  2. ENVARSUS XR [Concomitant]
     Active Substance: TACROLIMUS
  3. TIZANIDINE [Concomitant]
     Active Substance: TIZANIDINE
  4. COQ10 100MG CAPSULES [Concomitant]
  5. DILTIAZEM ER 180MG CAPS (XR-24H) [Concomitant]
  6. LEVOXYL 0.05MG (50MCG) TABLETS [Concomitant]
  7. LORAZEPAM [Concomitant]
     Active Substance: LORAZEPAM
  8. OXYCODONE 5MG IMMEDIATE REL TABS [Concomitant]
  9. MULTIVITAMIN TABLETS [Concomitant]
  10. VITAMIN B-12 1000MCG SUBLINGUAL TAB [Concomitant]
  11. VITAMIN D 1,000UNIT CAPSULES [Concomitant]

REACTIONS (2)
  - Congenital cystic kidney disease [None]
  - Dyspnoea [None]

NARRATIVE: CASE EVENT DATE: 20160501
